FAERS Safety Report 12919810 (Version 5)
Quarter: 2017Q3

REPORT INFORMATION
  Report Type: Spontaneous
  Country: US (occurrence: US)
  Receive Date: 20161108
  Receipt Date: 20170918
  Transmission Date: 20171127
  Serious: No
  Sender: FDA-Public Use
  Company Number: US-PFIZER INC-2016517908

PATIENT
  Age: 83 Year
  Sex: Female

DRUGS (1)
  1. XELJANZ [Suspect]
     Active Substance: TOFACITINIB CITRATE
     Dosage: 5 MG, 2X/DAY
     Dates: start: 201402

REACTIONS (7)
  - Fall [Unknown]
  - Abnormal dreams [Unknown]
  - Oral mucosal blistering [Unknown]
  - Gastric disorder [Unknown]
  - Drug ineffective [Unknown]
  - Lip dry [Unknown]
  - Contusion [Unknown]

NARRATIVE: CASE EVENT DATE: 2017
